FAERS Safety Report 9292276 (Version 1)
Quarter: 2013Q2

REPORT INFORMATION
  Report Type: Report from Study
  Country: US (occurrence: US)
  Receive Date: 20130516
  Receipt Date: 20130516
  Transmission Date: 20140414
  Serious: Yes (Other)
  Sender: FDA-Public Use
  Company Number: PHEH2013US008636

PATIENT
  Age: 61 Year
  Sex: Male
  Weight: 96 kg

DRUGS (30)
  1. TOBI [Suspect]
     Indication: PNEUMONIA PSEUDOMONAS AERUGINOSA
     Dosage: 300 MG, BID (30 DAYS ON, 30 DAYS OFF)
     Dates: start: 20120101
  2. TOBI [Suspect]
     Dosage: 300 MG, BID (30 DAYS ON, 30 DAYS OFF)
     Dates: start: 20120814
  3. ACETYLCYSTEINE [Concomitant]
     Dosage: UNK MG/ML, ONCE
     Route: 042
  4. JUVEN [Concomitant]
     Dosage: UNK
     Route: 048
  5. TUMS [Concomitant]
     Dosage: 1 DF, THREE TIMES A DAY WITH MEALS
     Route: 048
  6. PERIDEX [Concomitant]
     Dosage: 15 ML, 2 TIMES DAILY
     Route: 048
  7. VITAMIN D3 [Concomitant]
     Dosage: 1 DF, DAILY
     Route: 048
  8. CELEXA [Concomitant]
     Dosage: 1 DF, DAILY
     Route: 048
  9. VALIUM [Concomitant]
     Dosage: 1-2 DF, EVERY 6-8 HOURS PRN
  10. MARINOL [Concomitant]
     Dosage: 10 MG, TWO TIMES DAILY BEFORE MEALS
     Route: 048
  11. LOVENOX [Concomitant]
     Dosage: 40 MG, ONCE DAILY
  12. PROCRIT [Concomitant]
     Dosage: 1 DF, ONCE A WEEK
  13. FERROUS SULFATE [Concomitant]
     Dosage: 1 DF, THREE TIMES A DAY
     Route: 048
  14. DIFLUCAN [Concomitant]
     Dosage: 200 DF, DAILY
     Route: 048
     Dates: end: 20120628
  15. NEURONTIN [Concomitant]
     Dosage: 5 MG/KG, THREE TIMES DAILY
     Route: 048
  16. NEURONTIN [Concomitant]
     Dosage: 2 DF, THREE TIMES A DAY
     Route: 048
  17. METAGLIP [Concomitant]
     Dosage: UNK
  18. INSULIN GLARGINE [Concomitant]
     Dosage: 70 IU, TWO TIMES A DAY
     Route: 058
  19. DUONEB [Concomitant]
     Dosage: UNK , EVERY 4 HOURS
  20. PHILLIPS COLON HEALTH [Concomitant]
     Dosage: ONCE DAILY
     Route: 048
  21. LANSOPRAZOLE [Concomitant]
     Dosage: 30 MG, DAILY
  22. LEVAQUIN [Concomitant]
     Dosage: 1 DF, EVERY 48 HOURS
     Route: 048
     Dates: end: 20120702
  23. MULTIVITAMINS AND IRON [Concomitant]
     Dosage: 15 ML, UNK
  24. GLUCERNA [Concomitant]
     Dosage: UNK
     Route: 048
  25. MYCOSTATIN [Concomitant]
     Dosage: UNK, 2 TIMES DAILY
     Route: 061
  26. DITROPAN XL [Concomitant]
     Dosage: 10 MG, ONCE DAILY
     Route: 048
  27. DITROPAN XL [Concomitant]
     Dosage: 25 MG, THREE TIMES DAILY
     Route: 048
  28. MIRALAX//MACROGOL 3350 [Concomitant]
     Dosage: 17 G, ONCE DAILY
     Route: 048
  29. GAS-X MAX STRENGTH [Concomitant]
     Dosage: UNK, THREE TIMES A DAY 1/2 HOUR AFTER FEEDING
     Route: 048
  30. ALOE VESTA SKIN CONDITIONER [Concomitant]
     Dosage: 1 DF, TWO TIMES DAILY
     Route: 061

REACTIONS (23)
  - Staphylococcal infection [Not Recovered/Not Resolved]
  - Cellulitis staphylococcal [Not Recovered/Not Resolved]
  - Urinary tract infection [Not Recovered/Not Resolved]
  - Sepsis [Not Recovered/Not Resolved]
  - Pyrexia [Recovered/Resolved]
  - Diabetes mellitus inadequate control [Not Recovered/Not Resolved]
  - Spinal cord injury cervical [Not Recovered/Not Resolved]
  - Temperature regulation disorder [Unknown]
  - Quadriplegia [Not Recovered/Not Resolved]
  - Autonomic dysreflexia [Not Recovered/Not Resolved]
  - Hypotension [Not Recovered/Not Resolved]
  - Neurogenic bowel [Not Recovered/Not Resolved]
  - Neurogenic bladder [Not Recovered/Not Resolved]
  - Dysphagia [Not Recovered/Not Resolved]
  - Neuralgia [Not Recovered/Not Resolved]
  - Muscle spasticity [Not Recovered/Not Resolved]
  - Musculoskeletal pain [Not Recovered/Not Resolved]
  - Pneumonia aspiration [Not Recovered/Not Resolved]
  - Chronic respiratory failure [Not Recovered/Not Resolved]
  - Deep vein thrombosis [Not Recovered/Not Resolved]
  - Weaning failure [Not Recovered/Not Resolved]
  - Ulcer [Not Recovered/Not Resolved]
  - Anaemia [Not Recovered/Not Resolved]
